FAERS Safety Report 9106501 (Version 1)
Quarter: 2013Q1

REPORT INFORMATION
  Report Type: Spontaneous
  Country: US (occurrence: US)
  Receive Date: 20130221
  Receipt Date: 20130221
  Transmission Date: 20140127
  Serious: Yes (Life-Threatening, Other)
  Sender: FDA-Public Use
  Company Number: US-ROXANE LABORATORIES, INC.-2013-RO-00269RO

PATIENT
  Age: 20 Day
  Sex: Male

DRUGS (6)
  1. METHADONE [Suspect]
     Indication: THERAPY CHANGE
  2. METHADONE [Suspect]
     Dosage: 7.8 MG
  3. FENTANYL [Suspect]
     Indication: ANALGESIC THERAPY
     Route: 042
  4. FENTANYL [Suspect]
     Indication: SEDATION
  5. MORPHINE [Concomitant]
     Indication: ANALGESIC THERAPY
     Route: 042
  6. MORPHINE [Concomitant]
     Indication: SEDATION

REACTIONS (3)
  - Toxicity to various agents [Recovered/Resolved]
  - Incorrect dose administered [Recovered/Resolved]
  - Clonus [Recovered/Resolved]
